FAERS Safety Report 19359421 (Version 2)
Quarter: 2021Q3

REPORT INFORMATION
  Report Type: Spontaneous
  Country: US (occurrence: US)
  Receive Date: 20210602
  Receipt Date: 20210716
  Transmission Date: 20211014
  Serious: No
  Sender: FDA-Public Use
  Company Number: US-ASTRAZENECA-2021A408135

PATIENT
  Sex: Female
  Weight: 79.4 kg

DRUGS (2)
  1. SYMBICORT [Suspect]
     Active Substance: BUDESONIDE\FORMOTEROL FUMARATE DIHYDRATE
     Indication: ASTHMA
     Dosage: 160/4.5 MCG 1 PUFF TWO TIMES A DAY
     Route: 055
     Dates: start: 2018
  2. FASENRA [Suspect]
     Active Substance: BENRALIZUMAB
     Indication: ASTHMA
     Route: 058
     Dates: start: 202002

REACTIONS (3)
  - Injection site pain [Unknown]
  - Device leakage [Unknown]
  - Incorrect dose administered by device [Unknown]
